FAERS Safety Report 4540411-7 (Version None)
Quarter: 2004Q4

REPORT INFORMATION
  Report Type: 
  Country: None (occurrence: None)
  Receive Date: 20041222
  Receipt Date: 20041201
  Transmission Date: 20050328
  Serious: Yes (Death, Life-Threatening)
  Sender: FDA-Public Use
  Company Number: JP_041205341

PATIENT
  Age: 65 Year
  Sex: Female

DRUGS (2)
  1. GEMZAR [Suspect]
     Indication: BILE DUCT CANCER
     Dosage: 1000 MG/M2
  2. RADIATION THERAPY [Concomitant]

REACTIONS (3)
  - CARCINOEMBRYONIC ANTIGEN INCREASED [None]
  - GASTROINTESTINAL HAEMORRHAGE [None]
  - SUDDEN DEATH [None]
